FAERS Safety Report 24333016 (Version 1)
Quarter: 2024Q3

REPORT INFORMATION
  Report Type: Other
  Country: CY (occurrence: CY)
  Receive Date: 20240918
  Receipt Date: 20240918
  Transmission Date: 20241017
  Serious: Yes (Life-Threatening, Hospitalization, Other)
  Sender: EMD SERONO INC
  Company Number: CY-Merck Healthcare KGaA-2024048158

PATIENT
  Age: 77 Year
  Sex: Male

DRUGS (1)
  1. AVELUMAB [Suspect]
     Active Substance: AVELUMAB
     Indication: Bladder cancer

REACTIONS (8)
  - Diplopia [Recovering/Resolving]
  - Respiratory disorder [Recovering/Resolving]
  - Myalgia [Recovering/Resolving]
  - Muscle contractions involuntary [Recovering/Resolving]
  - Antiacetylcholine receptor antibody positive [Recovering/Resolving]
  - Asthenia [Recovering/Resolving]
  - Dyspnoea [Recovering/Resolving]
  - Blood creatine phosphokinase increased [Recovering/Resolving]
